FAERS Safety Report 9343783 (Version 1)
Quarter: 2013Q2

REPORT INFORMATION
  Report Type: Spontaneous
  Country: GB (occurrence: GB)
  Receive Date: 20130612
  Receipt Date: 20130612
  Transmission Date: 20140414
  Serious: Yes (Other)
  Sender: FDA-Public Use
  Company Number: GB-JNJFOC-20130522756

PATIENT
  Age: 69 Year
  Sex: Female

DRUGS (5)
  1. DOXORUBICIN [Suspect]
     Indication: NEOPLASM MALIGNANT
     Route: 042
  2. CYCLOPHOSPHAMIDE [Suspect]
     Indication: NEOPLASM MALIGNANT
     Route: 065
  3. ONCOVIN [Suspect]
     Indication: NEOPLASM MALIGNANT
     Route: 065
  4. PREDNISOLONE [Suspect]
     Indication: NEOPLASM MALIGNANT
     Route: 065
  5. RITUXIMAB [Suspect]
     Indication: NEOPLASM MALIGNANT
     Route: 065

REACTIONS (9)
  - Syncope [Recovered/Resolved]
  - Nerve injury [Recovered/Resolved]
  - Rectal haemorrhage [Recovered/Resolved]
  - Fluid retention [Recovered/Resolved]
  - Decreased appetite [Recovered/Resolved]
  - Diarrhoea [Recovered/Resolved]
  - Irritable bowel syndrome [Recovered/Resolved]
  - Malaise [Recovered/Resolved]
  - Local swelling [Recovered/Resolved]
